FAERS Safety Report 16418179 (Version 1)
Quarter: 2019Q2

REPORT INFORMATION
  Report Type: Spontaneous
  Country: US (occurrence: US)
  Receive Date: 20190611
  Receipt Date: 20190611
  Transmission Date: 20190711
  Serious: No
  Sender: FDA-Public Use
  Company Number: US-009507513-1906USA000676

PATIENT
  Sex: Female

DRUGS (1)
  1. INTRON A [Suspect]
     Active Substance: INTERFERON ALFA-2B
     Indication: EYE SYMPTOM
     Dosage: 4 DROPS EVERY DAY

REACTIONS (3)
  - No adverse event [Unknown]
  - Product use issue [Unknown]
  - Product use in unapproved indication [Unknown]
